FAERS Safety Report 8776989 (Version 1)
Quarter: 2012Q4

REPORT INFORMATION
  Report Type: 
  Country: US (occurrence: US)
  Receive Date: 20120911
  Receipt Date: 20120911
  Transmission Date: 20130627
  Serious: Yes (Hospitalization)
  Sender: FDA-Public Use
  Company Number: US-BAYER-2012-093781

PATIENT
  Age: 40 Year
  Sex: Female
  Weight: 62.7 kg

DRUGS (3)
  1. YASMIN [Suspect]
     Dosage: UNK
  2. NECON 1/35 [Concomitant]
     Dosage: UNK
  3. ROXICET [Concomitant]
     Dosage: UNK

REACTIONS (1)
  - Thrombophlebitis superficial [None]
